APPROVED DRUG PRODUCT: FLUDEOXYGLUCOSE F18
Active Ingredient: FLUDEOXYGLUCOSE F-18
Strength: 4-90mCi/ML **Federal Register determination that product was not discontinued or withdrawn for safety or effectiveness reasons**
Dosage Form/Route: INJECTABLE;INJECTION
Application: N020306 | Product #002
Applicant: DOWNSTATE CLINICAL PET CENTER
Approved: Sep 25, 2001 | RLD: Yes | RS: No | Type: DISCN